FAERS Safety Report 8994785 (Version 1)
Quarter: 2012Q4

REPORT INFORMATION
  Report Type: Spontaneous
  Country: US (occurrence: None)
  Receive Date: 20121228
  Receipt Date: 20121228
  Transmission Date: 20130627
  Serious: Yes (Other)
  Sender: FDA-Public Use
  Company Number: None

PATIENT
  Age: 54 Year
  Sex: Female
  Weight: 61.24 kg

DRUGS (4)
  1. PREVASTATIN SODIUM [Suspect]
     Indication: BLOOD CHOLESTEROL INCREASED
     Dosage: 40 mg 1 a day pill
     Dates: start: 20121112, end: 20121115
  2. PREVASTATIN SODIUM [Suspect]
     Dosage: 40 mg 1 a day pill
     Dates: start: 20121112, end: 20121115
  3. PREVASTATIN SODIUM [Suspect]
     Indication: BLOOD CHOLESTEROL INCREASED
  4. PREVASTATIN SODIUM [Suspect]

REACTIONS (11)
  - Muscle spasms [None]
  - Arthralgia [None]
  - Bone pain [None]
  - Vomiting [None]
  - Dyspnoea [None]
  - Hyperhidrosis [None]
  - Chills [None]
  - Wheezing [None]
  - Chest discomfort [None]
  - Malaise [None]
  - Fatigue [None]
